FAERS Safety Report 7201789-9 (Version None)
Quarter: 2010Q4

REPORT INFORMATION
  Report Type: 
  Country: None (occurrence: None)
  Receive Date: 20101215
  Receipt Date: 20101202
  Transmission Date: 20110411
  Serious: Yes (Death, Other)
  Sender: FDA-Public Use
  Company Number: US-2010-2819

PATIENT
  Sex: Male

DRUGS (4)
  1. VINORELBINE [Suspect]
     Indication: HODGKIN'S DISEASE
  2. GEMCITABINE [Concomitant]
  3. DOXORUBICIN HCL [Concomitant]
  4. MONOCLONAL ANTIBODY SGN-30 [Concomitant]

REACTIONS (4)
  - ENTEROCOCCAL INFECTION [None]
  - INTERSTITIAL LUNG DISEASE [None]
  - LUNG INFECTION PSEUDOMONAL [None]
  - PNEUMONIA [None]
